FAERS Safety Report 5293497-9 (Version None)
Quarter: 2007Q2

REPORT INFORMATION
  Report Type: 
  Country: None (occurrence: None)
  Receive Date: 20070411
  Receipt Date: 20070409
  Transmission Date: 20071010
  Serious: Yes (Hospitalization)
  Sender: FDA-Public Use
  Company Number: US-GLAXOSMITHKLINE-A0645990A

PATIENT
  Age: 79 Year
  Sex: Male

DRUGS (1)
  1. COREG [Suspect]
     Dosage: 6.25MG TWICE PER DAY
     Route: 048
     Dates: start: 20070128, end: 20070206

REACTIONS (2)
  - ILL-DEFINED DISORDER [None]
  - RASH [None]
